FAERS Safety Report 8773917 (Version 1)
Quarter: 2012Q4

REPORT INFORMATION
  Report Type: 
  Country: SG (occurrence: SG)
  Receive Date: 20120907
  Receipt Date: 20120907
  Transmission Date: 20130627
  Serious: Yes (Hospitalization)
  Sender: FDA-Public Use
  Company Number: SG-BAYER-2012-092992

PATIENT
  Age: 21 Year
  Sex: Male

DRUGS (1)
  1. ACETYLSALICYLIC ACID({=100 MG) [Suspect]
     Route: 048

REACTIONS (1)
  - Angioedema [Recovered/Resolved]
